FAERS Safety Report 4865949-4 (Version None)
Quarter: 2005Q4

REPORT INFORMATION
  Report Type: 
  Country: None (occurrence: None)
  Receive Date: 20051226
  Receipt Date: 20051218
  Transmission Date: 20060501
  Serious: Yes (Hospitalization, Other)
  Sender: FDA-Public Use
  Company Number: PHEH2005US13607

PATIENT
  Sex: Male

DRUGS (4)
  1. GLEEVEC [Suspect]
     Indication: CHRONIC MYELOID LEUKAEMIA
     Dosage: UNK, UNK
     Dates: start: 20040101
  2. GLEEVEC [Suspect]
     Dosage: 100 MG, UNK
     Route: 048
  3. GLEEVEC [Suspect]
     Dosage: 200 MG, UNK
     Route: 048
  4. GLEEVEC [Suspect]
     Dosage: 300 MG, UNK
     Route: 048

REACTIONS (6)
  - DEHYDRATION [None]
  - DIALYSIS [None]
  - DIARRHOEA [None]
  - EJECTION FRACTION DECREASED [None]
  - RENAL FAILURE ACUTE [None]
  - VENTRICULAR TACHYCARDIA [None]
